FAERS Safety Report 22133054 (Version 2)
Quarter: 2023Q2

REPORT INFORMATION
  Report Type: Spontaneous
  Country: JP (occurrence: JP)
  Receive Date: 20230324
  Receipt Date: 20230517
  Transmission Date: 20230722
  Serious: Yes (Hospitalization, Other)
  Sender: FDA-Public Use
  Company Number: JP-Accord-304815

PATIENT
  Age: 79 Year
  Sex: Female

DRUGS (1)
  1. METHOTREXATE [Suspect]
     Active Substance: METHOTREXATE
     Indication: Rheumatoid arthritis
     Dosage: SINCE THE AGE 64 YEARS

REACTIONS (4)
  - Lymphoproliferative disorder [Unknown]
  - Small intestinal obstruction [Unknown]
  - Diffuse large B-cell lymphoma [Unknown]
  - Metastases to peritoneum [Unknown]
